FAERS Safety Report 20478709 (Version 2)
Quarter: 2022Q1

REPORT INFORMATION
  Report Type: Spontaneous
  Country: US (occurrence: None)
  Receive Date: 20220216
  Receipt Date: 20220323
  Transmission Date: 20220423
  Serious: No
  Sender: FDA-Public Use
  Company Number: 2022A057071

PATIENT
  Sex: Female
  Weight: 51.3 kg

DRUGS (4)
  1. FASENRA [Suspect]
     Active Substance: BENRALIZUMAB
     Indication: Asthma-chronic obstructive pulmonary disease overlap syndrome
     Dosage: EVERY EIGHT WEEKS
     Route: 058
     Dates: start: 201911
  2. FASENRA [Suspect]
     Active Substance: BENRALIZUMAB
     Indication: Chronic obstructive pulmonary disease
     Dosage: EVERY EIGHT WEEKS
     Route: 058
     Dates: start: 201911
  3. SYMBICORT [Suspect]
     Active Substance: BUDESONIDE\FORMOTEROL FUMARATE DIHYDRATE
     Indication: Asthma-chronic obstructive pulmonary disease overlap syndrome
     Dosage: 160/4.5 PRESCRIBED AT 2 PUFFS TWO TIMES A DAY AND HAS USED IT FOR ABOUT 6 YEARS. PATIENT REPORTED...
     Route: 055
  4. SYMBICORT [Suspect]
     Active Substance: BUDESONIDE\FORMOTEROL FUMARATE DIHYDRATE
     Indication: Chronic obstructive pulmonary disease
     Dosage: 160/4.5 PRESCRIBED AT 2 PUFFS TWO TIMES A DAY AND HAS USED IT FOR ABOUT 6 YEARS. PATIENT REPORTED...
     Route: 055

REACTIONS (2)
  - Dyspnoea [Unknown]
  - Off label use [Unknown]
